FAERS Safety Report 14610053 (Version 3)
Quarter: 2018Q1

REPORT INFORMATION
  Report Type: Report from Study
  Country: None (occurrence: CA)
  Receive Date: 20180307
  Receipt Date: 20180330
  Transmission Date: 20180509
  Serious: Yes (Hospitalization, Other)
  Sender: FDA-Public Use
  Company Number: CA-ABBVIE-18P-028-2275352-00

PATIENT
  Age: 67 Year
  Sex: Female

DRUGS (1)
  1. VENCLEXTA [Suspect]
     Active Substance: VENETOCLAX
     Indication: ACUTE MYELOID LEUKAEMIA
     Route: 048
     Dates: start: 20180103, end: 20180302

REACTIONS (5)
  - Urinary tract infection bacterial [Recovered/Resolved]
  - Febrile neutropenia [Recovered/Resolved]
  - Off label use [Not Recovered/Not Resolved]
  - Clostridium difficile colitis [Recovered/Resolved]
  - Malignant neoplasm progression [Unknown]

NARRATIVE: CASE EVENT DATE: 20180227
